FAERS Safety Report 15069765 (Version 1)
Quarter: 2018Q2

REPORT INFORMATION
  Report Type: Report from Study
  Country: US (occurrence: US)
  Receive Date: 20180626
  Receipt Date: 20180626
  Transmission Date: 20180711
  Serious: No
  Sender: FDA-Public Use
  Company Number: US-AMGEN-USASP2014025172

PATIENT
  Age: 62 Year
  Sex: Female

DRUGS (9)
  1. ZOFRAN [Concomitant]
     Active Substance: ONDANSETRON HYDROCHLORIDE
     Dosage: 8 MG, UNK
     Route: 042
  2. NEULASTA [Suspect]
     Active Substance: PEGFILGRASTIM
     Indication: PRODUCT USED FOR UNKNOWN INDICATION
     Dosage: UNK
     Route: 065
  3. DOCETAXEL. [Concomitant]
     Active Substance: DOCETAXEL
     Dosage: 120 MG, UNK
     Route: 042
  4. CARBOPLATIN. [Concomitant]
     Active Substance: CARBOPLATIN
     Dosage: 700 MG, UNK
     Route: 042
  5. HERCEPTIN [Suspect]
     Active Substance: TRASTUZUMAB
     Indication: BREAST CANCER
     Dosage: 378 MG, UNK
     Route: 042
     Dates: start: 20120420
  6. CARBOPLATIN. [Concomitant]
     Active Substance: CARBOPLATIN
     Dosage: 850 MG, UNK
     Route: 042
  7. BENADRYL [Concomitant]
     Active Substance: DIPHENHYDRAMINE HYDROCHLORIDE
     Dosage: 25 MG, UNK
     Route: 042
  8. HERCEPTIN [Suspect]
     Active Substance: TRASTUZUMAB
     Dosage: 357 MG, UNK
     Route: 042
     Dates: start: 20120511
  9. PEPCID [Concomitant]
     Active Substance: FAMOTIDINE
     Dosage: 20 MG, UNK
     Route: 042

REACTIONS (8)
  - Skin fissures [Unknown]
  - Constipation [Unknown]
  - Diarrhoea [Unknown]
  - Nausea [Unknown]
  - Fatigue [Unknown]
  - Decreased appetite [Unknown]
  - Vomiting [Unknown]
  - Neuropathy peripheral [Unknown]
